FAERS Safety Report 11346903 (Version 1)
Quarter: 2015Q3

REPORT INFORMATION
  Report Type: Spontaneous
  Country: US (occurrence: US)
  Receive Date: 20150806
  Receipt Date: 20150806
  Transmission Date: 20151125
  Serious: No
  Sender: FDA-Public Use
  Company Number: US-BRISTOL-MYERS SQUIBB COMPANY-BMS-2015-050150

PATIENT
  Sex: Male

DRUGS (1)
  1. LYSODREN [Suspect]
     Active Substance: MITOTANE
     Indication: PRODUCT USED FOR UNKNOWN INDICATION
     Dosage: 500 MG, UNK
     Route: 065

REACTIONS (1)
  - Accidental exposure to product [Unknown]
